FAERS Safety Report 10640237 (Version 1)
Quarter: 2014Q4

REPORT INFORMATION
  Report Type: Spontaneous
  Country: KR (occurrence: None)
  Receive Date: 20141205
  Receipt Date: 20141205
  Transmission Date: 20150529
  Serious: Yes (Other)
  Sender: FDA-Public Use
  Company Number: FK201405658

PATIENT
  Age: 20 Year
  Sex: Male

DRUGS (1)
  1. VALPROATE (MANUFACTURER UNKNOWN) (VALPROATE SODIUM) (VALPROATE SODIUM) [Suspect]
     Active Substance: VALPROATE SODIUM
     Indication: SEIZURE

REACTIONS (3)
  - Heart rate increased [None]
  - Haemoglobin decreased [None]
  - Interstitial lung disease [None]
